FAERS Safety Report 6468093-8 (Version None)
Quarter: 2009Q4

REPORT INFORMATION
  Report Type: 
  Country: None (occurrence: None)
  Receive Date: 20091127
  Receipt Date: 20091119
  Transmission Date: 20100525
  Serious: Yes (Hospitalization)
  Sender: FDA-Public Use
  Company Number: 2009AL007363

PATIENT
  Age: 51 Year
  Sex: Male
  Weight: 115 kg

DRUGS (4)
  1. CARBAMAZEPINE [Suspect]
  2. CITALOPRAM HYDROBROMIDE [Suspect]
  3. LITHIUM [Concomitant]
  4. VALPROIC ACID [Concomitant]

REACTIONS (19)
  - APATHY [None]
  - AVOIDANT PERSONALITY DISORDER [None]
  - BRADYPHRENIA [None]
  - CONDITION AGGRAVATED [None]
  - DISTURBANCE IN ATTENTION [None]
  - DRUG INEFFECTIVE [None]
  - ERECTILE DYSFUNCTION [None]
  - FATIGUE [None]
  - FEELINGS OF WORTHLESSNESS [None]
  - HYPOGONADISM [None]
  - IMPAIRED WORK ABILITY [None]
  - IRRITABILITY [None]
  - LOSS OF LIBIDO [None]
  - MOOD SWINGS [None]
  - NEUROPATHY PERIPHERAL [None]
  - NO THERAPEUTIC RESPONSE [None]
  - OBESITY [None]
  - PERSONALITY CHANGE [None]
  - TYPE 2 DIABETES MELLITUS [None]
